FAERS Safety Report 4920185-8 (Version None)
Quarter: 2006Q1

REPORT INFORMATION
  Report Type: 
  Country: None (occurrence: None)
  Receive Date: 20060223
  Receipt Date: 20060207
  Transmission Date: 20060701
  Serious: Yes (Other)
  Sender: FDA-Public Use
  Company Number: 2006AP00653

PATIENT
  Age: 2 Month
  Sex: Male
  Weight: 5.6 kg

DRUGS (1)
  1. PULMICORT [Suspect]
     Indication: ASTHMA
     Dosage: 600-800 UG FROM 6TH MONTH GESTATION
     Route: 064
     Dates: start: 20050501

REACTIONS (10)
  - ADRENAL CORTICAL INSUFFICIENCY [None]
  - BLOOD CORTICOTROPHIN INCREASED [None]
  - DERMATITIS [None]
  - DRUG EXPOSURE DURING PREGNANCY [None]
  - ECZEMA [None]
  - EFFUSION [None]
  - FOOD ALLERGY [None]
  - HYPOTHALAMO-PITUITARY DISORDERS [None]
  - NEUTROPENIA [None]
  - PRURITUS [None]
